FAERS Safety Report 25238301 (Version 1)
Quarter: 2025Q2

REPORT INFORMATION
  Report Type: Spontaneous
  Country: GB (occurrence: GB)
  Receive Date: 20250425
  Receipt Date: 20250425
  Transmission Date: 20250717
  Serious: Yes (Death, Other)
  Sender: ABBVIE
  Company Number: GB-ABBVIE-1000005679

PATIENT
  Age: 41 Year
  Sex: Female
  Weight: 72 kg

DRUGS (2)
  1. CITALOPRAM HYDROBROMIDE [Suspect]
     Active Substance: CITALOPRAM HYDROBROMIDE
     Indication: Depression
     Dosage: DAILY DOSE: 20.0 MG, TOTAL: 600.0 MG, FORM: UNKNOWN
     Route: 048
     Dates: start: 200811, end: 200812
  2. UNSPECIFIED INGREDIENT [Concomitant]
     Active Substance: UNSPECIFIED INGREDIENT
     Indication: Product used for unknown indication
     Route: 048

REACTIONS (7)
  - Sudden death [Fatal]
  - Coma [Fatal]
  - Brain oedema [Fatal]
  - Malaise [Fatal]
  - Rash [Fatal]
  - Headache [Fatal]
  - Encephalitis viral [Fatal]

NARRATIVE: CASE EVENT DATE: 20081202
